FAERS Safety Report 9350390 (Version 3)
Quarter: 2014Q1

REPORT INFORMATION
  Report Type: Report from Study
  Country: US (occurrence: US)
  Receive Date: 20130617
  Receipt Date: 20140101
  Transmission Date: 20141002
  Serious: Yes (Hospitalization)
  Sender: FDA-Public Use
  Company Number: US-ROCHE-1237323

PATIENT
  Sex: Male

DRUGS (2)
  1. ZELBORAF [Suspect]
     Indication: LYMPHOMA
     Dosage: STARTED TREATMENT END OF MAY OR FIRST PART OF JUNE
     Route: 048
  2. ZELBORAF [Suspect]
     Indication: MALIGNANT MELANOMA

REACTIONS (8)
  - Malaise [Unknown]
  - Blister [Not Recovered/Not Resolved]
  - Somnolence [Unknown]
  - Apathy [Unknown]
  - Asthenia [Unknown]
  - Insomnia [Unknown]
  - Therapy cessation [Unknown]
  - Drug ineffective [Unknown]
